FAERS Safety Report 10178543 (Version 1)
Quarter: 2014Q2

REPORT INFORMATION
  Report Type: Spontaneous
  Country: US (occurrence: None)
  Receive Date: 20140516
  Receipt Date: 20140516
  Transmission Date: 20141212
  Serious: Yes (Hospitalization)
  Sender: FDA-Public Use
  Company Number: None

PATIENT
  Age: 67 Year
  Sex: Female
  Weight: 68.6 kg

DRUGS (1)
  1. ROCURONIUM BROMIDE [Suspect]
     Indication: NEUROMUSCULAR BLOCKADE
     Route: 042
     Dates: start: 20140509

REACTIONS (4)
  - Dyspnoea [None]
  - Neuromuscular block prolonged [None]
  - Drug effect increased [None]
  - Product quality issue [None]
